FAERS Safety Report 21843895 (Version 1)
Quarter: 2023Q1

REPORT INFORMATION
  Report Type: Spontaneous
  Country: US (occurrence: None)
  Receive Date: 20230109
  Receipt Date: 20230109
  Transmission Date: 20230418
  Serious: Yes (Other)
  Sender: FDA-Public Use
  Company Number: None

PATIENT
  Age: 73 Year
  Sex: Female
  Weight: 49.9 kg

DRUGS (10)
  1. TECLISTAMAB [Suspect]
     Active Substance: TECLISTAMAB
     Indication: Plasma cell myeloma
     Dosage: OTHER FREQUENCY : EVERY 2-4 DAYS;?
     Route: 058
     Dates: start: 20230104
  2. ALLOPURINOL [Concomitant]
     Active Substance: ALLOPURINOL
     Dates: start: 20230101
  3. Bupropion XL 24 hr 150 mg [Concomitant]
     Dates: start: 20230101
  4. dexamethasone 16 mg [Concomitant]
     Dates: start: 20230106, end: 20230106
  5. diphenhydramine 50 mg [Concomitant]
     Dates: start: 20230106, end: 20230106
  6. glargine 12 units [Concomitant]
     Dates: start: 20230101
  7. itraconazole 200mg BID [Concomitant]
     Dates: start: 20230103, end: 20230107
  8. posaconazole 400mg BID [Concomitant]
     Dates: start: 20221223, end: 20221229
  9. itraconazole 400mg QD [Concomitant]
     Dates: start: 20221230, end: 20230103
  10. valacyclovir 500mg BID [Concomitant]
     Dates: start: 20230101

REACTIONS (1)
  - Hepatitis viral [None]

NARRATIVE: CASE EVENT DATE: 20230107
